FAERS Safety Report 12950438 (Version 1)
Quarter: 2016Q4

REPORT INFORMATION
  Report Type: Spontaneous
  Country: US (occurrence: US)
  Receive Date: 20161117
  Receipt Date: 20161117
  Transmission Date: 20170207
  Serious: Yes (Hospitalization, Disabling, Other)
  Sender: FDA-Public Use
  Company Number: None

PATIENT
  Age: 23 Year
  Sex: Male
  Weight: 90 kg

DRUGS (3)
  1. BENADRYL [Concomitant]
     Active Substance: DIPHENHYDRAMINE HYDROCHLORIDE
  2. PANHEMATIN [Suspect]
     Active Substance: HEMIN
     Indication: PORPHYRIA
     Route: 042
     Dates: start: 20080824, end: 20140531
  3. VALIUM [Concomitant]
     Active Substance: DIAZEPAM

REACTIONS (2)
  - Therapeutic drug monitoring analysis not performed [None]
  - Liver injury [None]

NARRATIVE: CASE EVENT DATE: 20080824
